FAERS Safety Report 17560617 (Version 1)
Quarter: 2020Q1

REPORT INFORMATION
  Report Type: Spontaneous
  Country: US (occurrence: US)
  Receive Date: 20200312
  Receipt Date: 20200312
  Transmission Date: 20200409
  Serious: No
  Sender: FDA-Public Use
  Company Number: None

PATIENT
  Age: 66 Year
  Sex: Male

DRUGS (1)
  1. SEROSTIM [Suspect]
     Active Substance: SOMATROPIN
     Dosage: DOSE: 1 INJECTION
     Route: 058
     Dates: start: 20200312

REACTIONS (1)
  - Device dispensing error [None]

NARRATIVE: CASE EVENT DATE: 20200312
